FAERS Safety Report 17094990 (Version 1)
Quarter: 2019Q4

REPORT INFORMATION
  Report Type: Report from Study
  Country: PL (occurrence: PL)
  Receive Date: 20191130
  Receipt Date: 20191130
  Transmission Date: 20200122
  Serious: Yes (Hospitalization)
  Sender: FDA-Public Use
  Company Number: PL-ACCORD-163448

PATIENT
  Age: 39 Year
  Sex: Female

DRUGS (7)
  1. CLONIDINE. [Interacting]
     Active Substance: CLONIDINE
     Indication: HYPERTENSION
  2. DOXAZOSIN [Concomitant]
     Active Substance: DOXAZOSIN MESYLATE
     Indication: HYPERTENSION
  3. TORASEMIDE [Concomitant]
     Active Substance: TORSEMIDE
     Indication: HYPERTENSION
  4. TRAZODONE [Suspect]
     Active Substance: TRAZODONE HYDROCHLORIDE
     Indication: ANTIDEPRESSANT THERAPY
  5. ZOFENOPRIL/ZOFENOPRIL CALCIUM [Concomitant]
     Active Substance: ZOFENOPRIL
     Indication: HYPERTENSION
  6. INDAPAMIDE. [Concomitant]
     Active Substance: INDAPAMIDE
     Indication: HYPERTENSION
  7. AMLODIPINE [Concomitant]
     Active Substance: AMLODIPINE BESYLATE
     Indication: HYPERTENSION

REACTIONS (3)
  - Hypotension [Unknown]
  - Sedation [Unknown]
  - Drug interaction [Unknown]
